FAERS Safety Report 8142960-1 (Version None)
Quarter: 2012Q1

REPORT INFORMATION
  Report Type: 
  Country: None (occurrence: None)
  Receive Date: 20120217
  Receipt Date: 20120207
  Transmission Date: 20120608
  Serious: No
  Sender: FDA-Public Use
  Company Number: US-BIOGENIDEC-2012BI004914

PATIENT
  Sex: Male

DRUGS (4)
  1. AVONEX [Concomitant]
     Indication: MULTIPLE SCLEROSIS
     Route: 030
     Dates: start: 20080301
  2. AVONEX [Concomitant]
     Route: 030
     Dates: start: 20070501
  3. TYSABRI [Suspect]
     Route: 042
     Dates: start: 20120112
  4. TYSABRI [Suspect]
     Indication: MULTIPLE SCLEROSIS
     Route: 042
     Dates: start: 20070716, end: 20111202

REACTIONS (3)
  - MUSCULOSKELETAL DISORDER [None]
  - PAIN [None]
  - GENERAL SYMPTOM [None]
